FAERS Safety Report 4299992-3 (Version None)
Quarter: 2004Q1

REPORT INFORMATION
  Report Type: 
  Country: None (occurrence: None)
  Receive Date: 20040218
  Receipt Date: 20040204
  Transmission Date: 20041129
  Serious: Yes (Hospitalization)
  Sender: FDA-Public Use
  Company Number: FR-JNJFOC-20040201060

PATIENT
  Age: 60 Year
  Sex: Female
  Weight: 95 kg

DRUGS (9)
  1. REMICADE [Suspect]
     Indication: ANKYLOSING SPONDYLITIS
     Dosage: 435 MG, INTRAVENOUS
     Route: 042
     Dates: start: 20030521
  2. PREDNISONE [Concomitant]
  3. INEXIUM (ESOMEPRAZOLE) [Concomitant]
  4. KETOPROFEN [Concomitant]
  5. MORPHINE SULFATE [Concomitant]
  6. CODOLIPRANE (PANADEINE CO) [Concomitant]
  7. HEXAQUINE (HEXAQUINE) [Concomitant]
  8. DUSPATALIN (MEBEVERINE HYDROCHLORIDE) [Concomitant]
  9. POLY-KARAYA (POLY-KARAYA) [Concomitant]

REACTIONS (6)
  - AREFLEXIA [None]
  - DIFFICULTY IN WALKING [None]
  - INTERMITTENT CLAUDICATION [None]
  - MOTOR DYSFUNCTION [None]
  - NERVOUS SYSTEM DISORDER [None]
  - SENSORY DISTURBANCE [None]
